FAERS Safety Report 21159649 (Version 1)
Quarter: 2022Q3

REPORT INFORMATION
  Report Type: Spontaneous
  Country: ES (occurrence: ES)
  Receive Date: 20220802
  Receipt Date: 20220802
  Transmission Date: 20221026
  Serious: Yes (Other)
  Sender: FDA-Public Use
  Company Number: ES-AEMPS-1229104

PATIENT
  Age: 10 Month
  Sex: Male

DRUGS (5)
  1. ACYCLOVIR [Suspect]
     Active Substance: ACYCLOVIR
     Indication: Meningitis pneumococcal
     Dosage: 570 MILLIGRAM, 3 TIMES A DAY
     Route: 042
     Dates: start: 20220526, end: 20220527
  2. AMPICILLIN SODIUM [Suspect]
     Active Substance: AMPICILLIN SODIUM
     Indication: Meningitis pneumococcal
     Dosage: 2850 MILLIGRAM, FOUR TIMES/DAY
     Route: 042
     Dates: start: 20220526, end: 20220527
  3. PENICILLIN G SODIUM [Suspect]
     Active Substance: PENICILLIN G SODIUM
     Indication: Meningitis pneumococcal
     Dosage: 40000 UI/KG/DIA
     Route: 042
     Dates: start: 20220530, end: 20220629
  4. CEFOTAXIME SODIUM [Suspect]
     Active Substance: CEFOTAXIME SODIUM
     Indication: Meningitis pneumococcal
     Dosage: 2840 MILLIGRAM, FOUR TIMES/DAY
     Route: 042
     Dates: start: 20220526, end: 20220527
  5. DEXAMETHASONE [Concomitant]
     Active Substance: DEXAMETHASONE
     Indication: Meningitis pneumococcal
     Dosage: 600 MILLIGRAM, FOUR TIMES/DAY
     Route: 042
     Dates: start: 20220526, end: 20220527

REACTIONS (2)
  - Hyperbilirubinaemia [Recovered/Resolved]
  - Hepatic cytolysis [Recovered/Resolved]

NARRATIVE: CASE EVENT DATE: 20220607
